FAERS Safety Report 6574162-4 (Version None)
Quarter: 2010Q1

REPORT INFORMATION
  Report Type: 
  Country: None (occurrence: None)
  Receive Date: 20100201
  Receipt Date: 20100114
  Transmission Date: 20100710
  Serious: No
  Sender: FDA-Public Use
  Company Number: 1-21312252

PATIENT
  Age: 1 Month
  Sex: Female
  Weight: 7.0308 kg

DRUGS (1)
  1. NYSTATIN + TRIAMCINOLONE ACETONIDE [Suspect]
     Indication: DERMATITIS DIAPER
     Dosage: Q OTHER DIAPER CHANGE, TOPICAL
     Route: 061
     Dates: start: 20091016, end: 20100108

REACTIONS (4)
  - BREAST ENLARGEMENT [None]
  - HIRSUTISM [None]
  - HYPERTENSION [None]
  - INCREASED APPETITE [None]
